FAERS Safety Report 7589908-6 (Version None)
Quarter: 2011Q3

REPORT INFORMATION
  Report Type: 
  Country: None (occurrence: None)
  Receive Date: 20110705
  Receipt Date: 20110629
  Transmission Date: 20111222
  Serious: Yes (Other)
  Sender: FDA-Public Use
  Company Number: BR-PFIZER INC-2011145226

PATIENT
  Age: 51 Year
  Sex: Female

DRUGS (4)
  1. APRAZ [Concomitant]
     Indication: ANXIOLYTIC THERAPY
     Dosage: 0.5 MG, 1X/DAY
     Dates: start: 20110614
  2. LYRICA [Suspect]
     Indication: NEUROPATHY PERIPHERAL
     Dosage: 150 MG, 1X/DAY
     Route: 048
     Dates: start: 20090101
  3. IBUPROFEN [Concomitant]
     Indication: ARTHRALGIA
     Dosage: UNK
  4. PROFLAM [Concomitant]
     Indication: ARTHRALGIA
     Dosage: UNK

REACTIONS (6)
  - BLOOD CHOLESTEROL INCREASED [None]
  - HEADACHE [None]
  - DIZZINESS [None]
  - BLOOD PRESSURE INCREASED [None]
  - MEMORY IMPAIRMENT [None]
  - WEIGHT INCREASED [None]
